FAERS Safety Report 12701610 (Version 1)
Quarter: 2016Q3

REPORT INFORMATION
  Report Type: Spontaneous
  Country: US (occurrence: None)
  Receive Date: 20160830
  Receipt Date: 20160830
  Transmission Date: 20161109
  Serious: No
  Sender: FDA-Public Use
  Company Number: None

PATIENT
  Age: 56 Year
  Sex: Female

DRUGS (3)
  1. REPATHA [Suspect]
     Active Substance: EVOLOCUMAB
     Indication: HYPERLIPIDAEMIA
  2. REPATHA [Suspect]
     Active Substance: EVOLOCUMAB
     Indication: IMMUNOLOGY TEST ABNORMAL
  3. REPATHA [Suspect]
     Active Substance: EVOLOCUMAB
     Indication: BLOOD PRESSURE INCREASED

REACTIONS (3)
  - Peripheral swelling [None]
  - Constipation [None]
  - Myalgia [None]

NARRATIVE: CASE EVENT DATE: 20160825
